FAERS Safety Report 14009564 (Version 1)
Quarter: 2017Q3

REPORT INFORMATION
  Report Type: Spontaneous
  Country: US (occurrence: US)
  Receive Date: 20170925
  Receipt Date: 20170925
  Transmission Date: 20171128
  Serious: Yes (Hospitalization, Other)
  Sender: FDA-Public Use
  Company Number: US-ELI_LILLY_AND_COMPANY-US201709002310

PATIENT
  Sex: Female

DRUGS (25)
  1. CYMBALTA [Suspect]
     Active Substance: DULOXETINE HYDROCHLORIDE
     Indication: PRODUCT USED FOR UNKNOWN INDICATION
     Dosage: 60 MG, DAILY
     Route: 048
  2. OXYCODONE [Concomitant]
     Active Substance: OXYCODONE
     Dosage: UNK, UNKNOWN
     Route: 065
  3. MORPHINE [Concomitant]
     Active Substance: MORPHINE
     Dosage: 15 MG, BID
     Route: 048
  4. HUMIRA [Concomitant]
     Active Substance: ADALIMUMAB
     Dosage: UNK, UNKNOWN
     Route: 065
     Dates: start: 2012
  5. COENZYME Q10 [Concomitant]
     Active Substance: UBIDECARENONE
     Dosage: 400 MG, DAILY
     Route: 048
  6. FLAXSEED OIL                       /01649403/ [Concomitant]
     Dosage: 3 DF, DAILY
     Route: 065
  7. METHOTREXATE. [Concomitant]
     Active Substance: METHOTREXATE
     Dosage: UNK, UNKNOWN
     Route: 065
  8. CIMZIA [Concomitant]
     Active Substance: CERTOLIZUMAB PEGOL
     Dosage: UNK, UNKNOWN
     Route: 065
  9. BIOTIN [Concomitant]
     Active Substance: BIOTIN
     Dosage: 300 UG, DAILY
     Route: 048
  10. CYMBALTA [Suspect]
     Active Substance: DULOXETINE HYDROCHLORIDE
     Dosage: 40 MG, DAILY
     Route: 048
     Dates: start: 20170505
  11. ALLOPURINOL. [Concomitant]
     Active Substance: ALLOPURINOL
     Indication: BLOOD URIC ACID INCREASED
     Dosage: 100 MG, BID
     Route: 065
  12. HYDROCORTISONE. [Concomitant]
     Active Substance: HYDROCORTISONE
     Dosage: UNK UNK, BID
     Route: 061
  13. CLOBETASOL [Concomitant]
     Active Substance: CLOBETASOL
     Dosage: UNK, BID
     Route: 061
  14. SECUKINUMAB [Concomitant]
     Active Substance: SECUKINUMAB
     Dosage: UNK, UNKNOWN
     Route: 065
  15. TRAMADOL. [Concomitant]
     Active Substance: TRAMADOL
     Indication: PAIN
     Dosage: UNK, UNKNOWN
     Route: 065
  16. OTEZLA [Concomitant]
     Active Substance: APREMILAST
     Dosage: 10 MG, OTHER
     Route: 065
  17. SIMPONI [Concomitant]
     Active Substance: GOLIMUMAB
     Dosage: UNK, UNKNOWN
     Route: 065
  18. TIZANIDINE. [Concomitant]
     Active Substance: TIZANIDINE
     Indication: SLEEP DISORDER
     Dosage: 4 MG, EACH EVENING
     Route: 048
  19. FOLIC ACID. [Concomitant]
     Active Substance: FOLIC ACID
     Dosage: UNK, UNKNOWN
     Route: 048
  20. ENBREL [Concomitant]
     Active Substance: ETANERCEPT
     Indication: ARTHRITIS
     Dosage: UNK, UNKNOWN
     Route: 065
     Dates: start: 200612
  21. REMICADE [Concomitant]
     Active Substance: INFLIXIMAB
     Dosage: UNK, UNKNOWN
     Route: 065
  22. HALOBETASOL PROPIONATE. [Concomitant]
     Active Substance: HALOBETASOL PROPIONATE
     Dosage: UNK, BID
     Route: 061
  23. LIDODERM [Concomitant]
     Active Substance: LIDOCAINE
     Dosage: UNK, ONE PATCH FOR UP TO 12 HOURS
     Route: 061
  24. THIAMINE HCL [Concomitant]
     Dosage: UNK, UNKNOWN
     Route: 065
  25. CYANOCOBALAMIN. [Concomitant]
     Active Substance: CYANOCOBALAMIN
     Dosage: UNK, UNKNOWN
     Route: 065

REACTIONS (26)
  - Urosepsis [Unknown]
  - Abdominal distension [Unknown]
  - Anxiety [Unknown]
  - Depressed mood [Unknown]
  - Pain [Unknown]
  - Dysphagia [Unknown]
  - Abdominal discomfort [Unknown]
  - Arthritis bacterial [Unknown]
  - Chest pain [Unknown]
  - Nephrolithiasis [Unknown]
  - Hypohidrosis [Unknown]
  - Spinal pain [Unknown]
  - Hepatic steatosis [Unknown]
  - Pustular psoriasis [Unknown]
  - Back pain [Unknown]
  - Obesity [Unknown]
  - Gout [Unknown]
  - Lumbar spinal stenosis [Unknown]
  - Sciatica [Unknown]
  - Hypercholesterolaemia [Unknown]
  - Osteoarthritis [Unknown]
  - Psoriatic arthropathy [Unknown]
  - Pituitary tumour benign [Unknown]
  - Benign neoplasm of cervix uteri [Unknown]
  - Insomnia [Unknown]
  - Constipation [Unknown]

NARRATIVE: CASE EVENT DATE: 201406
